FAERS Safety Report 9308415 (Version 1)
Quarter: 2013Q2

REPORT INFORMATION
  Report Type: Report from Study
  Country: DE (occurrence: DE)
  Receive Date: 20130524
  Receipt Date: 20130524
  Transmission Date: 20140414
  Serious: Yes (Death, Hospitalization)
  Sender: FDA-Public Use
  Company Number: DE-ROCHE-1219589

PATIENT
  Age: 58 Year
  Sex: Male

DRUGS (2)
  1. VEMURAFENIB [Suspect]
     Indication: METASTATIC MALIGNANT MELANOMA
     Route: 048
     Dates: start: 20130322
  2. DEXAMETHASON [Concomitant]
     Dosage: DRUG INDICATION: INTRACRANIAL PRESSURE SYMPTOMS
     Route: 048
     Dates: start: 20130225

REACTIONS (4)
  - Neoplasm malignant [Fatal]
  - General physical health deterioration [Unknown]
  - Muscular weakness [Not Recovered/Not Resolved]
  - Weight decreased [Unknown]
